FAERS Safety Report 11355091 (Version 1)
Quarter: 2015Q3

REPORT INFORMATION
  Report Type: Spontaneous
  Country: US (occurrence: US)
  Receive Date: 20150807
  Receipt Date: 20150807
  Transmission Date: 20151125
  Serious: No
  Sender: FDA-Public Use
  Company Number: US-JNJFOC-20150707602

PATIENT
  Sex: Female
  Weight: 63.5 kg

DRUGS (14)
  1. PREVNAR [Concomitant]
     Active Substance: PNEUMOCOCCAL 7-VALENT CONJUGATE VACCINE (DIPHTHERIA CRM197 PROTEIN)
     Indication: IMMUNISATION
     Route: 065
     Dates: start: 20150408
  2. AUGMENTIN [Concomitant]
     Active Substance: AMOXICILLIN\CLAVULANATE POTASSIUM
     Indication: PRODUCT USED FOR UNKNOWN INDICATION
     Route: 065
  3. DELSYM [Concomitant]
     Active Substance: DEXTROMETHORPHAN
     Indication: RESPIRATORY TRACT CONGESTION
     Dosage: AS NEEDED
     Route: 065
  4. DELSYM [Concomitant]
     Active Substance: DEXTROMETHORPHAN
     Indication: COUGH
     Dosage: AS NEEDED
     Route: 065
  5. ZYRTEC 10MG IR TABLET [Suspect]
     Active Substance: CETIRIZINE HYDROCHLORIDE
     Indication: OROPHARYNGEAL PAIN
     Route: 048
  6. ZYRTEC 10MG IR TABLET [Suspect]
     Active Substance: CETIRIZINE HYDROCHLORIDE
     Indication: MALAISE
     Route: 048
  7. DELSYM [Concomitant]
     Active Substance: DEXTROMETHORPHAN
     Indication: NASAL CONGESTION
     Dosage: AS NEEDED
     Route: 065
  8. ZYRTEC 10MG IR TABLET [Suspect]
     Active Substance: CETIRIZINE HYDROCHLORIDE
     Indication: FATIGUE
     Route: 048
  9. DELSYM [Concomitant]
     Active Substance: DEXTROMETHORPHAN
     Indication: HEADACHE
     Dosage: AS NEEDED
     Route: 065
  10. DELSYM [Concomitant]
     Active Substance: DEXTROMETHORPHAN
     Indication: PYREXIA
     Dosage: AS NEEDED
     Route: 065
  11. ZYRTEC 10MG IR TABLET [Suspect]
     Active Substance: CETIRIZINE HYDROCHLORIDE
     Indication: RHINORRHOEA
     Route: 048
  12. ZYRTEC 10MG IR TABLET [Suspect]
     Active Substance: CETIRIZINE HYDROCHLORIDE
     Indication: CHILLS
     Route: 048
  13. ZYRTEC 10MG IR TABLET [Suspect]
     Active Substance: CETIRIZINE HYDROCHLORIDE
     Indication: SINUS HEADACHE
     Route: 048
  14. DELSYM [Concomitant]
     Active Substance: DEXTROMETHORPHAN
     Indication: OROPHARYNGEAL PAIN
     Dosage: AS NEEDED
     Route: 065

REACTIONS (4)
  - Drug ineffective for unapproved indication [Unknown]
  - Unevaluable event [Unknown]
  - Product use issue [Unknown]
  - Polydipsia [Unknown]
